FAERS Safety Report 16660863 (Version 1)
Quarter: 2019Q3

REPORT INFORMATION
  Report Type: Spontaneous
  Country: US (occurrence: US)
  Receive Date: 20190802
  Receipt Date: 20190802
  Transmission Date: 20191004
  Serious: No
  Sender: FDA-Public Use
  Company Number: US-FERRINGPH-2018FE05339

PATIENT
  Age: 42 Year
  Sex: Female
  Weight: 63 kg

DRUGS (3)
  1. ENDOMETRIN [Suspect]
     Active Substance: PROGESTERONE
     Indication: PROGESTERONE DECREASED
     Dosage: 100 MG, 2 TIMES DAILY
     Route: 067
  2. ENDOMETRIN [Suspect]
     Active Substance: PROGESTERONE
     Dosage: 100 MG, DAILY
     Route: 067
     Dates: start: 20180818
  3. LEVOTHYROXINE. [Concomitant]
     Active Substance: LEVOTHYROXINE
     Indication: HYPOTHYROIDISM
     Dosage: 50 ?G, DAILY
     Route: 065

REACTIONS (2)
  - Progesterone decreased [Unknown]
  - Prescribed underdose [Unknown]
